FAERS Safety Report 21014183 (Version 6)
Quarter: 2022Q4

REPORT INFORMATION
  Report Type: Report from Study
  Country: US (occurrence: US)
  Receive Date: 20220627
  Receipt Date: 20221007
  Transmission Date: 20230113
  Serious: Yes (Other)
  Sender: FDA-Public Use
  Company Number: US-BRISTOL-MYERS SQUIBB COMPANY-2022-061687

PATIENT
  Age: 63 Year
  Sex: Male
  Weight: 111 kg

DRUGS (20)
  1. DOCETAXEL [Suspect]
     Active Substance: DOCETAXEL
     Indication: Prostate cancer
     Dosage: PRIOR TO THE ONSET OF THE EVENT, THE PATIENT RECEIVED HIS MOST RECENT DOSE ON 08-FEB-2022.
     Route: 065
     Dates: start: 20220118
  2. PREDNISONE [Concomitant]
     Active Substance: PREDNISONE
     Indication: Prostate cancer
     Dosage: PRIOR TO THE ONSET OF THE EVENT, THE PATIENT RECEIVED HIS MOST RECENT DOSE ON 28-FEB-2022.
     Route: 065
     Dates: start: 20220118, end: 20220228
  3. CITRACAL CALCIUM PLUS VIT D3 [Concomitant]
     Indication: Prophylaxis
     Dosage: ONGOING
     Route: 048
     Dates: start: 2017
  4. IBUPROFEN [Concomitant]
     Active Substance: IBUPROFEN
     Indication: Product used for unknown indication
     Route: 048
     Dates: start: 2017, end: 20220313
  5. VITAMINS [Concomitant]
     Active Substance: VITAMINS
     Indication: Prophylaxis
     Dosage: MEN^S PLANT BASED MULTIVITAMIN
     Route: 047
     Dates: start: 2017, end: 20220313
  6. OMEPRAZOLE [Concomitant]
     Active Substance: OMEPRAZOLE
     Indication: Product used for unknown indication
     Dosage: ONGOING
     Route: 048
     Dates: start: 2012
  7. VITAMIN C [Concomitant]
     Active Substance: ASCORBIC ACID
     Indication: Prophylaxis
     Route: 048
     Dates: start: 2017, end: 20220313
  8. EFFEXOR [Concomitant]
     Active Substance: VENLAFAXINE HYDROCHLORIDE
     Indication: Product used for unknown indication
     Dosage: EFFEXOR XR
     Route: 048
     Dates: start: 20220208, end: 20220313
  9. AUGMENTIN [Concomitant]
     Active Substance: AMOXICILLIN\CLAVULANATE POTASSIUM
     Indication: Sinusitis
     Route: 048
     Dates: start: 20220303, end: 20220313
  10. DEXAMETHASONE [Concomitant]
     Active Substance: DEXAMETHASONE
     Indication: Product used for unknown indication
     Route: 048
     Dates: start: 20220118, end: 20220313
  11. SODIUM CHLORIDE [Concomitant]
     Active Substance: SODIUM CHLORIDE
     Indication: Fatigue
     Dosage: SODIUM CHLORIDE
     Route: 042
     Dates: start: 20220315, end: 20220405
  12. DURAGESIC [Concomitant]
     Active Substance: FENTANYL
     Indication: Product used for unknown indication
     Dosage: 1 DF= 50 UNITS NOS?ONGOING
     Route: 062
     Dates: start: 20210407
  13. DURAGESIC [Concomitant]
     Active Substance: FENTANYL
     Dosage: DURAGESIC-12
     Route: 062
     Dates: start: 2017, end: 20220406
  14. PREDNISONE [Concomitant]
     Active Substance: PREDNISONE
     Indication: Product used for unknown indication
     Dosage: ONGOING
     Route: 048
     Dates: start: 20220315
  15. PREDNISONE [Concomitant]
     Active Substance: PREDNISONE
     Route: 048
     Dates: start: 20211001, end: 20220314
  16. LIDOCAINE\PRILOCAINE [Concomitant]
     Active Substance: LIDOCAINE\PRILOCAINE
     Indication: Prophylaxis
     Dosage: 1 DF= 2.5 UNITS NOS?ONGOING
     Route: 061
     Dates: start: 20220111
  17. ONDANSETRON HYDROCHLORIDE [Concomitant]
     Active Substance: ONDANSETRON HYDROCHLORIDE
     Indication: Nausea
     Route: 048
     Dates: start: 20210407, end: 20220313
  18. CETIRIZINE HYDROCHLORIDE [Concomitant]
     Active Substance: CETIRIZINE HYDROCHLORIDE
     Indication: Product used for unknown indication
     Dosage: ONGOING
     Route: 048
     Dates: start: 2017
  19. BLACK COHOSH [CIMICIFUGA RACEMOSA ROOT] [Concomitant]
     Indication: Product used for unknown indication
     Dosage: BLACK COHOSH ROOT?ONGOING
     Route: 048
     Dates: start: 2017
  20. FERROUS SULFATE [Concomitant]
     Active Substance: FERROUS SULFATE
     Indication: Product used for unknown indication
     Route: 048
     Dates: start: 2017, end: 20220313

REACTIONS (1)
  - Blood creatine phosphokinase increased [Recovered/Resolved]

NARRATIVE: CASE EVENT DATE: 20220315
